FAERS Safety Report 9177174 (Version 4)
Quarter: 2013Q2

REPORT INFORMATION
  Report Type: Spontaneous
  Country: IT (occurrence: IT)
  Receive Date: 20130321
  Receipt Date: 20130506
  Transmission Date: 20140414
  Serious: Yes (Death, Hospitalization, Other)
  Sender: FDA-Public Use
  Company Number: IT-GENZYME-CLOF-1002560

PATIENT
  Age: 64 Year
  Sex: Female

DRUGS (4)
  1. EVOLTRA [Suspect]
     Indication: PRODUCT USED FOR UNKNOWN INDICATION
     Dosage: 60 MG/ CYCLE
     Route: 042
     Dates: start: 20130202, end: 20130206
  2. THYMOGLOBULINE [Suspect]
     Indication: PRODUCT USED FOR UNKNOWN INDICATION
     Dosage: UNK
     Route: 042
     Dates: start: 20130204, end: 20130206
  3. VANCOMYCIN [Suspect]
     Indication: PRODUCT USED FOR UNKNOWN INDICATION
     Dosage: 2 G, QD
     Route: 042
     Dates: start: 20130214, end: 20130217
  4. TREOSULFAN [Concomitant]
     Indication: PRODUCT USED FOR UNKNOWN INDICATION
     Dosage: UNK
     Route: 042
     Dates: start: 20130202, end: 20130204

REACTIONS (5)
  - Multi-organ failure [Fatal]
  - Toxic epidermal necrolysis [Not Recovered/Not Resolved]
  - Bone marrow failure [Unknown]
  - Streptococcal infection [Unknown]
  - Off label use [Unknown]
